FAERS Safety Report 14652787 (Version 1)
Quarter: 2018Q1

REPORT INFORMATION
  Report Type: Spontaneous
  Country: US (occurrence: US)
  Receive Date: 20180319
  Receipt Date: 20180319
  Transmission Date: 20180509
  Serious: Yes (Death, Hospitalization, Other)
  Sender: FDA-Public Use
  Company Number: US-BAXTER-2018BAX008612

PATIENT
  Sex: Female

DRUGS (2)
  1. NEXTERONE [Suspect]
     Active Substance: AMIODARONE HYDROCHLORIDE
     Indication: ATRIAL FIBRILLATION
     Dosage: PRESCRIBED FOR 30 DAYS
     Route: 065
  2. NEXTERONE [Suspect]
     Active Substance: AMIODARONE HYDROCHLORIDE
     Indication: OFF LABEL USE
     Route: 042
     Dates: start: 201302, end: 20130222

REACTIONS (4)
  - Dyspnoea exertional [Unknown]
  - Acute respiratory failure [Fatal]
  - Respiratory failure [Fatal]
  - Dyspnoea [Unknown]

NARRATIVE: CASE EVENT DATE: 201302
